FAERS Safety Report 6023337-1 (Version None)
Quarter: 2008Q4

REPORT INFORMATION
  Report Type: 
  Country: None (occurrence: None)
  Receive Date: 20081230
  Receipt Date: 20081222
  Transmission Date: 20090506
  Serious: Yes (Hospitalization, Other)
  Sender: FDA-Public Use
  Company Number: CA-ELI_LILLY_AND_COMPANY-CA200812005443

PATIENT
  Age: 49 Year
  Sex: Male

DRUGS (15)
  1. FORTEO [Suspect]
     Indication: OSTEOPOROSIS
     Dosage: 20 UG, DAILY (1/D)
     Dates: start: 20080517, end: 20080818
  2. PREDNISONE [Concomitant]
  3. CITALOPRAM HYDROBROMIDE [Concomitant]
  4. METFORMIN HCL [Concomitant]
  5. FERROUS SULFATE TAB [Concomitant]
  6. DILTIAZEM [Concomitant]
  7. RAMIPRIL [Concomitant]
  8. FUROSEMIDE [Concomitant]
  9. METHADON HCL TAB [Concomitant]
  10. NEXIUM [Concomitant]
  11. CALCIUM CARBONATE [Concomitant]
  12. VITAMIN D [Concomitant]
  13. VENTOLIN                                /SCH/ [Concomitant]
  14. PULMICORT-100 [Concomitant]
  15. OXYGEN [Concomitant]

REACTIONS (2)
  - FALL [None]
  - HIP FRACTURE [None]
